FAERS Safety Report 13980906 (Version 1)
Quarter: 2017Q3

REPORT INFORMATION
  Report Type: Spontaneous
  Country: US (occurrence: US)
  Receive Date: 20170918
  Receipt Date: 20170918
  Transmission Date: 20171128
  Serious: No
  Sender: FDA-Public Use
  Company Number: US-TEVA-683950USA

PATIENT
  Age: 68 Year
  Sex: Male
  Weight: 84.81 kg

DRUGS (13)
  1. FEXOFENADINE [Suspect]
     Active Substance: FEXOFENADINE\FEXOFENADINE HYDROCHLORIDE
     Indication: DRY EYE
     Dosage: 1/2 TABLET
     Route: 048
     Dates: start: 20160726, end: 20160726
  2. CALCIUM + MAGNESIUM [Concomitant]
  3. DULERA [Concomitant]
     Active Substance: FORMOTEROL FUMARATE DIHYDRATE\MOMETASONE FUROATE
     Dates: start: 201607
  4. FEXOFENADINE [Suspect]
     Active Substance: FEXOFENADINE\FEXOFENADINE HYDROCHLORIDE
     Indication: EYE PRURITUS
  5. FEXOFENADINE [Suspect]
     Active Substance: FEXOFENADINE\FEXOFENADINE HYDROCHLORIDE
     Indication: SNEEZING
  6. FEXOFENADINE [Suspect]
     Active Substance: FEXOFENADINE\FEXOFENADINE HYDROCHLORIDE
     Indication: UPPER-AIRWAY COUGH SYNDROME
     Dosage: 180 MILLIGRAM DAILY; AT BEDTIME
     Route: 048
     Dates: start: 20160722, end: 20160725
  7. FLONASE [Concomitant]
     Active Substance: FLUTICASONE PROPIONATE
  8. POTASSIUM [Concomitant]
     Active Substance: POTASSIUM
  9. BABY ASPIRIN [Concomitant]
     Active Substance: ASPIRIN
  10. ELECTROLYTE SOLUTIONS [Concomitant]
     Active Substance: UNSPECIFIED INGREDIENT
  11. PROAIR HFA [Concomitant]
     Active Substance: ALBUTEROL SULFATE
     Dates: start: 201607
  12. SINGULAIR [Concomitant]
     Active Substance: MONTELUKAST SODIUM
     Dates: start: 201607
  13. BYSTOLIC [Concomitant]
     Active Substance: NEBIVOLOL HYDROCHLORIDE

REACTIONS (6)
  - Somnolence [Unknown]
  - Drug administered to patient of inappropriate age [Unknown]
  - Underdose [Unknown]
  - Blood pressure increased [Recovered/Resolved]
  - Off label use [Unknown]
  - Wrong technique in product usage process [Unknown]

NARRATIVE: CASE EVENT DATE: 20160722
